FAERS Safety Report 6595604-4 (Version None)
Quarter: 2010Q1

REPORT INFORMATION
  Report Type: 
  Country: None (occurrence: None)
  Receive Date: 20100223
  Receipt Date: 20100217
  Transmission Date: 20100710
  Serious: Yes (Hospitalization)
  Sender: FDA-Public Use
  Company Number: AT-BRISTOL-MYERS SQUIBB COMPANY-14982078

PATIENT
  Age: 61 Year
  Sex: Female

DRUGS (2)
  1. METFORMIN HCL [Suspect]
     Dosage: 4JUL07-19JAN10;931D THERAPY INTERRUPTED ON 19JAN2010,RESTARTED ON 21JAN2010.
     Route: 065
     Dates: start: 20070704
  2. BYETTA [Suspect]
     Dosage: FORMULATION PEN,DISPOSABLE,INJECTABLE DEVICE.
     Route: 065
     Dates: start: 20070719

REACTIONS (1)
  - EYELID INFECTION [None]
